FAERS Safety Report 15505302 (Version 1)
Quarter: 2018Q4

REPORT INFORMATION
  Report Type: Report from Study
  Country: DE (occurrence: DE)
  Receive Date: 20181016
  Receipt Date: 20181016
  Transmission Date: 20190205
  Serious: Yes (Other)
  Sender: FDA-Public Use
  Company Number: DE-ROCHE-2198776

PATIENT
  Sex: Female

DRUGS (2)
  1. LUCENTIS [Suspect]
     Active Substance: RANIBIZUMAB
     Indication: PRODUCT USED FOR UNKNOWN INDICATION
     Dosage: UNK
     Route: 050
     Dates: start: 20160206
  2. LUCENTIS [Suspect]
     Active Substance: RANIBIZUMAB
     Dosage: UNK
     Route: 050
     Dates: start: 201608, end: 201608

REACTIONS (2)
  - Drug effect incomplete [Not Recovered/Not Resolved]
  - Cystoid macular oedema [Not Recovered/Not Resolved]

NARRATIVE: CASE EVENT DATE: 20160206
